FAERS Safety Report 5496019-2 (Version None)
Quarter: 2007Q4

REPORT INFORMATION
  Report Type: 
  Country: None (occurrence: None)
  Receive Date: 20071025
  Receipt Date: 20070109
  Transmission Date: 20080405
  Serious: No
  Sender: FDA-Public Use
  Company Number: A0634948A

PATIENT
  Age: 77 Year
  Sex: Female

DRUGS (11)
  1. ADVAIR DISKUS 100/50 [Suspect]
     Indication: CHRONIC OBSTRUCTIVE PULMONARY DISEASE
     Dosage: 1PUFF TWICE PER DAY
     Route: 055
     Dates: start: 20050801, end: 20060801
  2. ADVAIR DISKUS 100/50 [Suspect]
     Dosage: 2PUFF TWICE PER DAY
     Route: 055
     Dates: start: 20060701
  3. XOPENEX [Concomitant]
  4. SPIRIVA [Concomitant]
  5. FOSAMAX [Concomitant]
  6. PROTONIX [Concomitant]
  7. THEOPHYLLINE [Concomitant]
  8. XANAX [Concomitant]
  9. ASPIRIN [Concomitant]
  10. OXYGEN THERAPY [Concomitant]
     Indication: CHRONIC OBSTRUCTIVE PULMONARY DISEASE
     Route: 045
  11. NEBULIZER [Concomitant]
     Indication: CHRONIC OBSTRUCTIVE PULMONARY DISEASE

REACTIONS (3)
  - DRY MOUTH [None]
  - DYSPHONIA [None]
  - PHARYNGOLARYNGEAL PAIN [None]
